FAERS Safety Report 8420551-2 (Version None)
Quarter: 2012Q2

REPORT INFORMATION
  Report Type: 
  Country: None (occurrence: None)
  Receive Date: 20120608
  Receipt Date: 20120531
  Transmission Date: 20120825
  Serious: No
  Sender: FDA-Public Use
  Company Number: US-BIOGENIDEC-2010BI005071

PATIENT
  Age: 56 Year
  Sex: Female

DRUGS (4)
  1. TYSABRI [Suspect]
     Indication: MULTIPLE SCLEROSIS
     Route: 042
  2. AVONEX [Concomitant]
     Indication: MULTIPLE SCLEROSIS
     Route: 030
  3. TYSABRI [Suspect]
     Route: 042
     Dates: start: 20061006, end: 20091228
  4. TYSABRI [Suspect]
     Route: 042
     Dates: start: 20100913

REACTIONS (7)
  - DRUG INEFFECTIVE [None]
  - SWELLING FACE [None]
  - OEDEMA PERIPHERAL [None]
  - OEDEMA [None]
  - WEIGHT INCREASED [None]
  - LIVER FUNCTION TEST ABNORMAL [None]
  - FLUID RETENTION [None]
